FAERS Safety Report 10056193 (Version 2)
Quarter: 2014Q2

REPORT INFORMATION
  Report Type: Spontaneous
  Country: AR (occurrence: AR)
  Receive Date: 20140403
  Receipt Date: 20140417
  Transmission Date: 20141212
  Serious: Yes (Hospitalization)
  Sender: FDA-Public Use
  Company Number: AR-NOVOPROD-404659

PATIENT
  Age: 52 Year
  Sex: Male
  Weight: 108 kg

DRUGS (8)
  1. VICTOZA [Suspect]
     Indication: TYPE 2 DIABETES MELLITUS
     Dosage: 0.6 MG
     Route: 058
     Dates: start: 201108
  2. VICTOZA [Suspect]
     Dosage: 1.2 MG
     Route: 058
  3. VICTOZA [Suspect]
     Dosage: 1.8 MG
     Route: 058
     Dates: end: 20140307
  4. EZETIMIBE [Concomitant]
     Dosage: 10 MG, QD (VO)
     Route: 048
  5. ENALAPRIL [Concomitant]
     Dosage: 10 MG
     Route: 065
  6. METFORMINE [Concomitant]
     Dosage: 2000 MG, QD (VO)
     Route: 048
  7. GLICLAZIDE [Concomitant]
     Dosage: 60 MG
  8. INSULIN ASPART [Concomitant]
     Dosage: 50 IU

REACTIONS (2)
  - Perineal abscess [Not Recovered/Not Resolved]
  - Diabetes mellitus inadequate control [Unknown]
